FAERS Safety Report 8507110-8 (Version None)
Quarter: 2012Q3

REPORT INFORMATION
  Report Type: 
  Country: None (occurrence: None)
  Receive Date: 20120712
  Receipt Date: 20120703
  Transmission Date: 20120928
  Serious: Yes (Other)
  Sender: FDA-Public Use
  Company Number: AU-ALLERGAN-1209254US

PATIENT
  Age: 42 Year
  Sex: Female

DRUGS (1)
  1. BOTULINUM TOXIN TYPE A [Suspect]
     Indication: SKIN WRINKLING
     Dosage: UNK
     Dates: start: 20120512, end: 20120512

REACTIONS (5)
  - EYE MOVEMENT DISORDER [None]
  - INFLUENZA LIKE ILLNESS [None]
  - DISORIENTATION [None]
  - VISION BLURRED [None]
  - HYPOAESTHESIA [None]
